FAERS Safety Report 8118653-3 (Version None)
Quarter: 2012Q1

REPORT INFORMATION
  Report Type: 
  Country: None (occurrence: None)
  Receive Date: 20120202
  Receipt Date: 20120122
  Transmission Date: 20120608
  Serious: Yes (Hospitalization)
  Sender: FDA-Public Use
  Company Number: 1000025385

PATIENT
  Age: 80 Year
  Sex: Male
  Weight: 78 kg

DRUGS (7)
  1. SIMVASTATIN (SIMVASTATIN) (10 MILLIGRAM) (SIMVASTATIN) [Concomitant]
  2. MAGNESIUM (MAGNESIUM) (MAGNESIUM) [Concomitant]
  3. FORADIL (FORMOTEROL FUMARATE) (FORMOTEROL FUMARATE) [Concomitant]
  4. ALLOPURINOL [Concomitant]
  5. ATACAND (CANDESARTAN CILEXETIL) (4 MILLIGRAM) (CANDESARTAN CILEXETIL) [Concomitant]
  6. SPIRIVA (TIOTROPIUM BROMIDE) (TIOTROPIUM BROMIDE) [Concomitant]
  7. ROFLUMILAST (ROFLUMILAST) (TABLETS) [Suspect]
     Indication: CHRONIC OBSTRUCTIVE PULMONARY DISEASE
     Dosage: 500 MCG (500 MCG, 1 IN 1 D), ORAL
     Route: 048
     Dates: start: 20111028, end: 20111101

REACTIONS (10)
  - BLOOD SODIUM DECREASED [None]
  - CIRCULATORY COLLAPSE [None]
  - URINARY RETENTION [None]
  - COGNITIVE DISORDER [None]
  - DEPRESSION [None]
  - HYPOVENTILATION [None]
  - SINUS TACHYCARDIA [None]
  - DELIRIUM [None]
  - BLOOD UREA INCREASED [None]
  - RESPIRATORY ALKALOSIS [None]
